FAERS Safety Report 11545251 (Version 1)
Quarter: 2015Q3

REPORT INFORMATION
  Report Type: Spontaneous
  Country: US (occurrence: US)
  Receive Date: 20150924
  Receipt Date: 20150924
  Transmission Date: 20151125
  Serious: Yes (Life-Threatening)
  Sender: FDA-Public Use
  Company Number: US-FRESENIUS KABI-FK201504476

PATIENT
  Age: 89 Year
  Sex: Female

DRUGS (1)
  1. PROPOFOL (MANUFACTURER UNKNOWN) [Suspect]
     Active Substance: PROPOFOL
     Indication: GENERAL ANAESTHESIA
     Route: 065

REACTIONS (1)
  - Anaphylactic reaction [Recovered/Resolved]
